FAERS Safety Report 17859263 (Version 1)
Quarter: 2020Q2

REPORT INFORMATION
  Report Type: Report from Study
  Country: DE (occurrence: DE)
  Receive Date: 20200604
  Receipt Date: 20200604
  Transmission Date: 20200714
  Serious: Yes (Other)
  Sender: FDA-Public Use
  Company Number: DE-ROCHE-2481931

PATIENT
  Age: 75 Year
  Sex: Female

DRUGS (11)
  1. ROACTEMRA [Suspect]
     Active Substance: TOCILIZUMAB
     Route: 058
     Dates: start: 20200316
  2. ROACTEMRA [Suspect]
     Active Substance: TOCILIZUMAB
     Indication: TEMPORAL ARTERITIS
     Route: 058
     Dates: start: 20191009
  3. ROACTEMRA [Suspect]
     Active Substance: TOCILIZUMAB
     Route: 058
     Dates: start: 20200420
  4. CORTISONE [Suspect]
     Active Substance: CORTISONE
     Route: 065
  5. ROACTEMRA [Suspect]
     Active Substance: TOCILIZUMAB
     Route: 058
     Dates: start: 20200323
  6. ROACTEMRA [Suspect]
     Active Substance: TOCILIZUMAB
     Indication: TEMPORAL ARTERITIS
     Route: 042
     Dates: start: 20191008, end: 20191008
  7. DEKRISTOL [Concomitant]
     Active Substance: CHOLECALCIFEROL
  8. CORTISONE [Suspect]
     Active Substance: CORTISONE
     Indication: PRODUCT USED FOR UNKNOWN INDICATION
     Dosage: TAPPERING OFF
     Route: 065
  9. ROACTEMRA [Suspect]
     Active Substance: TOCILIZUMAB
     Route: 042
     Dates: start: 20200420
  10. PREDNISOLONE. [Concomitant]
     Active Substance: PREDNISOLONE
     Dosage: TAPERING
     Route: 065
  11. CORTISONE [Suspect]
     Active Substance: CORTISONE
     Dosage: TAPPERING OFF
     Route: 065

REACTIONS (16)
  - Arthralgia [Recovered/Resolved]
  - Ill-defined disorder [Recovered/Resolved]
  - Nasopharyngitis [Recovered/Resolved]
  - Cough [Recovered/Resolved]
  - Injection site erythema [Not Recovered/Not Resolved]
  - Dyspnoea [Recovered/Resolved]
  - Headache [Not Recovered/Not Resolved]
  - Off label use [Unknown]
  - Cystitis [Recovering/Resolving]
  - Urinary tract infection [Recovered/Resolved]
  - Spinal pain [Recovered/Resolved]
  - Contusion [Recovering/Resolving]
  - Intentional product use issue [Unknown]
  - Throat irritation [Unknown]
  - Pyrexia [Unknown]
  - Tracheal disorder [Recovered/Resolved]

NARRATIVE: CASE EVENT DATE: 20191028
